FAERS Safety Report 20962814 (Version 1)
Quarter: 2022Q2

REPORT INFORMATION
  Report Type: Spontaneous
  Country: US (occurrence: None)
  Receive Date: 20220615
  Receipt Date: 20220615
  Transmission Date: 20220720
  Serious: No
  Sender: FDA-Public Use
  Company Number: US-MDD US Operations-MDD202111-002383

PATIENT
  Age: 67 Year
  Sex: Female
  Weight: 58.06 kg

DRUGS (9)
  1. APOKYN [Suspect]
     Active Substance: APOMORPHINE HYDROCHLORIDE
     Indication: Nervousness
     Dosage: UP TO 0.3ML
     Route: 058
  2. LORATADINE [Concomitant]
     Active Substance: LORATADINE
     Dosage: NOT PROVIDED
  3. VITAMIN D3 [Concomitant]
     Active Substance: CHOLECALCIFEROL
     Dosage: NOT PROVIDED
  4. CARBIDOPA\LEVODOPA [Concomitant]
     Active Substance: CARBIDOPA\LEVODOPA
     Dosage: NOT PROVIDED
  5. Mitrazapine [Concomitant]
     Dosage: NOT PROVIDED
  6. CLONAZEPAM [Concomitant]
     Active Substance: CLONAZEPAM
     Dosage: NOT PROVIDED
  7. TRAZODONE HYDROCHLORIDE [Concomitant]
     Active Substance: TRAZODONE HYDROCHLORIDE
     Dosage: NOT PROVIDED
  8. LEVOTHYROXINE [Concomitant]
     Active Substance: LEVOTHYROXINE
     Dosage: NOT PROVIDED
  9. INGREZZA [Concomitant]
     Active Substance: VALBENAZINE
     Dosage: NOT PROVIDED

REACTIONS (3)
  - Nervousness [Unknown]
  - Tremor [Unknown]
  - Product use in unapproved indication [Unknown]
